FAERS Safety Report 9929323 (Version 1)
Quarter: 2014Q1

REPORT INFORMATION
  Report Type: Spontaneous
  Country: GB (occurrence: GB)
  Receive Date: 20140227
  Receipt Date: 20140227
  Transmission Date: 20141002
  Serious: Yes (Other)
  Sender: FDA-Public Use
  Company Number: GB-ACTAVIS-2014-03146

PATIENT
  Sex: Female

DRUGS (1)
  1. VINORELBINE (UNKNOWN) [Suspect]
     Indication: NON-SMALL CELL LUNG CANCER
     Dosage: UNK. RECEIVED 2 CYCLES
     Route: 065

REACTIONS (1)
  - Neutropenic sepsis [Recovered/Resolved]
